FAERS Safety Report 25378385 (Version 1)
Quarter: 2025Q2

REPORT INFORMATION
  Report Type: Spontaneous
  Country: FR (occurrence: FR)
  Receive Date: 20250530
  Receipt Date: 20250530
  Transmission Date: 20250716
  Serious: No
  Sender: AMPHASTAR
  Company Number: FR-Amphastar Pharmaceuticals, Inc.-2177753

PATIENT

DRUGS (1)
  1. BAQSIMI [Suspect]
     Active Substance: GLUCAGON
     Indication: Hypoglycaemia

REACTIONS (3)
  - Drug dose omission by device [Unknown]
  - No adverse event [Unknown]
  - Device issue [Unknown]
